FAERS Safety Report 9679217 (Version 2)
Quarter: 2013Q4

REPORT INFORMATION
  Report Type: Report from Study
  Country: US (occurrence: US)
  Receive Date: 20131108
  Receipt Date: 20131111
  Transmission Date: 20140711
  Serious: Yes (Death, Hospitalization)
  Sender: FDA-Public Use
  Company Number: US-ABBVIE-13P-163-1166335-00

PATIENT
  Sex: Female

DRUGS (19)
  1. HUMIRA [Suspect]
     Indication: CROHN^S DISEASE
     Route: 058
     Dates: start: 201102, end: 201201
  2. HUMIRA [Suspect]
     Indication: RHEUMATOID ARTHRITIS
  3. PREDNISONE [Suspect]
     Indication: CROHN^S DISEASE
  4. PREDNISONE [Suspect]
     Indication: RHEUMATOID ARTHRITIS
  5. HYDROCODONE [Concomitant]
     Indication: ARTHRALGIA
  6. CALCIUM [Concomitant]
     Indication: VITAMIN SUPPLEMENTATION
  7. FOLIC ACID [Concomitant]
     Indication: VITAMIN SUPPLEMENTATION
  8. UROCIT [Concomitant]
     Indication: PRODUCT USED FOR UNKNOWN INDICATION
  9. LISINOPRIL [Concomitant]
     Indication: PRODUCT USED FOR UNKNOWN INDICATION
  10. AMIODARONE [Concomitant]
     Indication: PRODUCT USED FOR UNKNOWN INDICATION
  11. ENTOCORT [Concomitant]
     Indication: CROHN^S DISEASE
  12. SLOW MAG [Concomitant]
     Indication: PRODUCT USED FOR UNKNOWN INDICATION
  13. FLOASTOR [Concomitant]
     Indication: PRODUCT USED FOR UNKNOWN INDICATION
  14. CENTRUM SILVER [Concomitant]
     Indication: VITAMIN SUPPLEMENTATION
  15. BICITRA [Concomitant]
     Indication: PRODUCT USED FOR UNKNOWN INDICATION
  16. SPIRONOLACTONE [Concomitant]
     Indication: PRODUCT USED FOR UNKNOWN INDICATION
  17. METHOTREXATE [Concomitant]
     Indication: RHEUMATOID ARTHRITIS
  18. ONDANSETRON HCL [Concomitant]
     Indication: NAUSEA
  19. ONDANSETRON HCL [Concomitant]
     Indication: CROHN^S DISEASE

REACTIONS (12)
  - Cardiac failure congestive [Fatal]
  - Anaemia [Fatal]
  - Dyspnoea [Unknown]
  - Pseudomonal sepsis [Unknown]
  - Candida infection [Unknown]
  - Deep vein thrombosis [Unknown]
  - Clostridium difficile infection [Unknown]
  - Cardiomyopathy [Unknown]
  - Abdominal pain [Unknown]
  - Congestive cardiomyopathy [Unknown]
  - Crohn^s disease [Fatal]
  - Anaemia [Unknown]
